FAERS Safety Report 7480736-9 (Version None)
Quarter: 2011Q2

REPORT INFORMATION
  Report Type: 
  Country: None (occurrence: None)
  Receive Date: 20110516
  Receipt Date: 20110504
  Transmission Date: 20111010
  Serious: Yes (Other)
  Sender: FDA-Public Use
  Company Number: BR-BAYER-2011-034290

PATIENT
  Age: 35 Year
  Sex: Female
  Weight: 75 kg

DRUGS (2)
  1. CAPTOPRIL [Concomitant]
     Indication: BLOOD PRESSURE FLUCTUATION
     Dosage: UNK
     Route: 048
     Dates: start: 20110413, end: 20110413
  2. NATAZIA [Suspect]
     Indication: MENSTRUATION IRREGULAR
     Dosage: UNK
     Route: 048
     Dates: start: 20110411

REACTIONS (3)
  - VAGINAL HAEMORRHAGE [None]
  - ANAEMIA [None]
  - HEADACHE [None]
